FAERS Safety Report 7292405-9 (Version None)
Quarter: 2011Q1

REPORT INFORMATION
  Report Type: 
  Country: None (occurrence: None)
  Receive Date: 20110215
  Receipt Date: 20110211
  Transmission Date: 20110831
  Serious: No
  Sender: FDA-Public Use
  Company Number: US-PFIZER INC-2011000985

PATIENT
  Sex: Female
  Weight: 64.853 kg

DRUGS (4)
  1. TOVIAZ [Suspect]
     Indication: POLLAKIURIA
     Dosage: 4 MG, EVERY OTHER DAY
     Dates: start: 20100101
  2. TOVIAZ [Suspect]
     Dosage: 4 MG, DAILY
     Route: 048
     Dates: start: 20100101
  3. INSULIN [Concomitant]
     Dosage: UNK, 4X/DAY
  4. WARFARIN [Concomitant]
     Indication: ATRIAL FIBRILLATION
     Dosage: UNK

REACTIONS (4)
  - CONSTIPATION [None]
  - VISION BLURRED [None]
  - SOMNOLENCE [None]
  - DRUG INEFFECTIVE [None]
